FAERS Safety Report 24617395 (Version 2)
Quarter: 2025Q2

REPORT INFORMATION
  Report Type: Report from Study
  Country: CA (occurrence: CA)
  Receive Date: 20241114
  Receipt Date: 20250415
  Transmission Date: 20250717
  Serious: Yes (Other)
  Sender: JOHNSON AND JOHNSON
  Company Number: CA-JNJFOC-20241081032

PATIENT
  Age: 72 Year
  Sex: Female
  Weight: 82 kg

DRUGS (14)
  1. REMICADE [Suspect]
     Active Substance: INFLIXIMAB
     Indication: Rheumatoid arthritis
     Route: 041
     Dates: start: 20100928
  2. CORTISONE [Suspect]
     Active Substance: CORTISONE
     Indication: Product used for unknown indication
     Route: 065
  3. HYDROMORPHONE [Concomitant]
     Active Substance: HYDROMORPHONE
  4. GENTEAL NA [Concomitant]
  5. CITALOPRAM [Concomitant]
     Active Substance: CITALOPRAM
  6. METHOTREXATE [Concomitant]
     Active Substance: METHOTREXATE
  7. SYNTHROID [Concomitant]
     Active Substance: LEVOTHYROXINE SODIUM
  8. ASPIRIN [Concomitant]
     Active Substance: ASPIRIN
  9. ROSUVASTATIN [Concomitant]
     Active Substance: ROSUVASTATIN
  10. FOLIC ACID [Concomitant]
     Active Substance: FOLIC ACID
  11. ACETAMINOPHEN [Concomitant]
     Active Substance: ACETAMINOPHEN
  12. HYDROMORPHONE [Concomitant]
     Active Substance: HYDROMORPHONE
  13. PANTOPRAZOLE [Concomitant]
     Active Substance: PANTOPRAZOLE
  14. DULOXETINE [Concomitant]
     Active Substance: DULOXETINE

REACTIONS (9)
  - Hypertension [Not Recovered/Not Resolved]
  - Off label use [Unknown]
  - Ligament rupture [Unknown]
  - Rash [Recovered/Resolved]
  - Injection site haemorrhage [Unknown]
  - Erythema [Recovering/Resolving]
  - Fatigue [Unknown]
  - Oral herpes [Recovered/Resolved]
  - Somnolence [Unknown]

NARRATIVE: CASE EVENT DATE: 20100928
